FAERS Safety Report 10655638 (Version 1)
Quarter: 2014Q4

REPORT INFORMATION
  Report Type: Spontaneous
  Country: US (occurrence: US)
  Receive Date: 20141216
  Receipt Date: 20141216
  Transmission Date: 20150529
  Serious: Yes (Death)
  Sender: FDA-Public Use
  Company Number: US-GLAXOSMITHKLINE-US2014GSK036221

PATIENT
  Age: 51 Year
  Sex: Male

DRUGS (1)
  1. VOTRIENT [Suspect]
     Active Substance: PAZOPANIB HYDROCHLORIDE
     Indication: OESOPHAGEAL CARCINOMA
     Dosage: 400 MG, QD
     Route: 048
     Dates: start: 20141023, end: 20141118

REACTIONS (2)
  - Disease progression [Fatal]
  - Disease complication [Fatal]
